FAERS Safety Report 9286447 (Version 1)
Quarter: 2013Q2

REPORT INFORMATION
  Report Type: Spontaneous
  Country: CA (occurrence: CA)
  Receive Date: 20130513
  Receipt Date: 20130513
  Transmission Date: 20140414
  Serious: Yes (Hospitalization, Other)
  Sender: FDA-Public Use
  Company Number: CA-B.I. PHARMACEUTICALS,INC./RIDGEFIELD-2013-BI-12701GD

PATIENT
  Age: 60 Year
  Sex: Male
  Weight: 61.1 kg

DRUGS (13)
  1. VIRAMUNE [Suspect]
     Indication: HIV INFECTION
     Dosage: 400 MG
  2. RIVAROXABAN [Suspect]
     Indication: THROMBOSIS PROPHYLAXIS
     Dosage: 10 MG
  3. LAMIVUDINE/ZIDOVUDINE [Concomitant]
     Indication: HIV INFECTION
     Dosage: LAMIVUDINE 150 MG/ZIDOVUDINE 300 MG TWICE DAILY
  4. AMLODIPINE [Concomitant]
     Dosage: 10 MG
  5. METOPROLOL [Concomitant]
     Dosage: 100 MG
  6. LISINOPRIL [Concomitant]
     Dosage: 20 MG
  7. HYDROCHLOROTHIAZIDE [Concomitant]
     Dosage: 25 MG
  8. ATORVASTATIN [Concomitant]
     Dosage: 20 MG
  9. ACETYLSALICYLIC ACID [Concomitant]
     Dosage: 81 MG
  10. CELECOXIB [Concomitant]
     Dosage: 200 MG
  11. OMEPRAZOLE [Concomitant]
     Dosage: 20 MG
  12. GABAPENTIN [Concomitant]
     Dosage: 900 MG
  13. LAMOTRIGINE [Concomitant]
     Dosage: 100 MG

REACTIONS (6)
  - Deep vein thrombosis [Unknown]
  - Drug interaction [Unknown]
  - Dyspnoea [Unknown]
  - Chest pain [Recovered/Resolved]
  - Local swelling [Unknown]
  - Sinus tachycardia [Unknown]
